FAERS Safety Report 14664238 (Version 1)
Quarter: 2018Q1

REPORT INFORMATION
  Report Type: Spontaneous
  Country: JP (occurrence: JP)
  Receive Date: 20180321
  Receipt Date: 20180321
  Transmission Date: 20180509
  Serious: Yes (Death)
  Sender: FDA-Public Use
  Company Number: JP-PFIZER INC-2017553373

PATIENT
  Age: 40 Year
  Sex: Female

DRUGS (2)
  1. FEMARA [Concomitant]
     Active Substance: LETROZOLE
     Dosage: UNK
  2. IBRANCE [Suspect]
     Active Substance: PALBOCICLIB
     Dosage: 125 MG, DAILY
     Route: 048
     Dates: start: 20171215, end: 201712

REACTIONS (3)
  - Pyrexia [Unknown]
  - Upper respiratory tract inflammation [Unknown]
  - Neoplasm progression [Fatal]

NARRATIVE: CASE EVENT DATE: 2017
